FAERS Safety Report 18588097 (Version 8)
Quarter: 2021Q3

REPORT INFORMATION
  Report Type: Report from Study
  Country: US (occurrence: US)
  Receive Date: 20201207
  Receipt Date: 20210730
  Transmission Date: 20211014
  Serious: Yes (Hospitalization)
  Sender: FDA-Public Use
  Company Number: US-B.I. PHARMACEUTICALS,INC./RIDGEFIELD-2020-BI-065478

PATIENT
  Age: 86 Year
  Sex: Male

DRUGS (2)
  1. OFEV [Suspect]
     Active Substance: NINTEDANIB
     Indication: IDIOPATHIC PULMONARY FIBROSIS
     Dosage: 100 MG TWICE A DAY ?909841, 2755, 1206, 4424, 4224
     Route: 048
     Dates: start: 20191114
  2. ELIQUIS [Suspect]
     Active Substance: APIXABAN
     Indication: THROMBOSIS

REACTIONS (12)
  - Ulcer haemorrhage [Unknown]
  - Diarrhoea [Not Recovered/Not Resolved]
  - Gastrointestinal haemorrhage [Unknown]
  - Diarrhoea [Recovering/Resolving]
  - Heart rate increased [Unknown]
  - Back injury [Unknown]
  - Gastric ulcer [Unknown]
  - Epistaxis [Unknown]
  - Red blood cell count decreased [Unknown]
  - Haemoglobin abnormal [Unknown]
  - Thrombosis [Unknown]
  - Dry mouth [Unknown]

NARRATIVE: CASE EVENT DATE: 2020
